FAERS Safety Report 7517469-6 (Version None)
Quarter: 2011Q2

REPORT INFORMATION
  Report Type: 
  Country: None (occurrence: None)
  Receive Date: 20110601
  Receipt Date: 20110525
  Transmission Date: 20111010
  Serious: Yes (Death, Hospitalization)
  Sender: FDA-Public Use
  Company Number: JP-PFIZER INC-2011035809

PATIENT
  Age: 58 Year
  Sex: Female
  Weight: 40 kg

DRUGS (12)
  1. SUTENT [Suspect]
     Indication: METASTATIC RENAL CELL CARCINOMA
     Dosage: 25 MG, 1X/DAY
     Route: 048
     Dates: start: 20100819
  2. PLAVIX [Concomitant]
     Indication: BRAIN STEM INFARCTION
     Dosage: 75 MG, 1X/DAY
     Route: 048
  3. SUTENT [Suspect]
     Dosage: 37.5 MG, 1X/DAY
     Route: 048
     Dates: start: 20110107, end: 20110127
  4. NORVASC [Concomitant]
     Indication: HYPERTENSION
     Dosage: 5 MG, 2X/DAY
     Route: 048
  5. FAMOTIDINE [Concomitant]
     Dosage: 10 MG, 2X/DAY
     Route: 048
     Dates: end: 20110130
  6. ETIZOLAM [Concomitant]
     Dosage: 0.5 MG, 2X/DAY
     Route: 048
  7. SITAGLIPTIN PHOSPHATE [Concomitant]
     Indication: DIABETES MELLITUS
     Dosage: 50 MG, 1X/DAY
     Route: 048
  8. BASEN [Concomitant]
     Indication: DIABETES MELLITUS
     Dosage: 0.3 MG, 3X/DAY
     Route: 048
  9. VALSARTAN [Concomitant]
     Indication: HYPERTENSION
     Dosage: 80 MG, 2X/DAY
     Route: 048
  10. AMARYL [Concomitant]
     Indication: DIABETES MELLITUS
     Dosage: 1 MG, 1X/DAY
     Route: 048
  11. PLETAL [Concomitant]
     Indication: BRAIN STEM INFARCTION
     Dosage: 50 MG, 2X/DAY
     Route: 048
  12. FRANDOL [Concomitant]
     Indication: MYOCARDIAL INFARCTION
     Dosage: 40 MG, 1X/DAY
     Route: 061

REACTIONS (5)
  - DISEASE PROGRESSION [None]
  - RENAL CELL CARCINOMA STAGE IV [None]
  - ABDOMINAL DISCOMFORT [None]
  - VOMITING [None]
  - C-REACTIVE PROTEIN INCREASED [None]
